FAERS Safety Report 9175118 (Version 2)
Quarter: 2013Q2

REPORT INFORMATION
  Report Type: Spontaneous
  Country: US (occurrence: US)
  Receive Date: 20130320
  Receipt Date: 20130410
  Transmission Date: 20140414
  Serious: No
  Sender: FDA-Public Use
  Company Number: US-B.I. PHARMACEUTICALS,INC./RIDGEFIELD-2013-BI-06042BP

PATIENT
  Age: 78 Year
  Sex: Female
  Weight: 84 kg

DRUGS (6)
  1. COMBIVENT [Suspect]
     Indication: CHRONIC OBSTRUCTIVE PULMONARY DISEASE
     Route: 055
     Dates: start: 2008
  2. METOPROLOL [Concomitant]
     Indication: HEART RATE IRREGULAR
     Dosage: 50 MG
     Route: 048
  3. SPIRONOLACTONE [Concomitant]
     Indication: FLUID RETENTION
     Dosage: 25 MG
     Route: 048
  4. CLOR-CON [Concomitant]
     Dosage: 8 MEQ
     Route: 048
  5. LASIX [Concomitant]
     Indication: FLUID RETENTION
     Dosage: 40 MG
     Route: 048
  6. DIGOXIN [Concomitant]
     Indication: HEART RATE IRREGULAR
     Dosage: 125 MCG
     Route: 048

REACTIONS (3)
  - Dyspnoea [Not Recovered/Not Resolved]
  - Wheezing [Not Recovered/Not Resolved]
  - Product quality issue [Not Recovered/Not Resolved]
